FAERS Safety Report 7445580-7 (Version None)
Quarter: 2011Q2

REPORT INFORMATION
  Report Type: 
  Country: None (occurrence: None)
  Receive Date: 20110429
  Receipt Date: 20110427
  Transmission Date: 20111010
  Serious: Yes (Other)
  Sender: FDA-Public Use
  Company Number: US-ROCHE-748182

PATIENT
  Sex: Male
  Weight: 102.1 kg

DRUGS (3)
  1. ACCUTANE [Suspect]
     Indication: ACNE
     Route: 065
     Dates: start: 20021122, end: 20021222
  2. ACCUTANE [Suspect]
     Route: 065
     Dates: start: 20021222, end: 20030122
  3. ACCUTANE [Suspect]
     Route: 065
     Dates: start: 20030305, end: 20030405

REACTIONS (8)
  - ANXIETY [None]
  - RECTAL HAEMORRHAGE [None]
  - INTESTINAL OBSTRUCTION [None]
  - CROHN'S DISEASE [None]
  - ABDOMINAL PAIN [None]
  - DEPRESSION [None]
  - INTESTINAL HAEMORRHAGE [None]
  - INSOMNIA [None]
